FAERS Safety Report 7647699-4 (Version None)
Quarter: 2011Q3

REPORT INFORMATION
  Report Type: 
  Country: None (occurrence: None)
  Receive Date: 20110801
  Receipt Date: 20110801
  Transmission Date: 20111222
  Serious: Yes (Disabling)
  Sender: FDA-Public Use
  Company Number: None

PATIENT
  Age: 50 Year
  Sex: Male
  Weight: 74.842 kg

DRUGS (5)
  1. CIPROFLOXACIN [Suspect]
     Indication: CYSTITIS
     Dosage: 1 TAB
     Route: 048
     Dates: start: 20110609, end: 20110619
  2. ATENLOL [Concomitant]
     Route: 048
  3. LEVOFLOXACIN [Concomitant]
     Indication: PROSTATITIS
     Dosage: 1 TAB
     Route: 048
     Dates: start: 20110628, end: 20110713
  4. ATENLOL [Concomitant]
     Route: 048
  5. RESTASIS [Concomitant]

REACTIONS (1)
  - TENDON RUPTURE [None]
